FAERS Safety Report 8257867-9 (Version None)
Quarter: 2012Q1

REPORT INFORMATION
  Report Type: 
  Country: None (occurrence: None)
  Receive Date: 20111211
  Receipt Date: 20111028
  Transmission Date: 20120608
  Serious: No
  Sender: FDA-Public Use
  Company Number: 201110034

PATIENT
  Age: 87 Year
  Sex: Female

DRUGS (7)
  1. LUMIGAN EYE DROPS (BIMATOPROST) [Concomitant]
  2. LORATADINE [Concomitant]
  3. XIAFLEX (CLOSTRIDIAL COLLAGENASE) [Suspect]
     Indication: DUPUYTREN'S CONTRACTURE
     Dosage: 0.58 MG, 1 IN 1 D, INTRALESIONAL
     Route: 026
     Dates: start: 20111011, end: 20111011
  4. OMEPRAZOLE [Concomitant]
  5. CRESTOR [Concomitant]
  6. LEVOTHYROXINE SODIUM [Concomitant]
  7. LISINOPRIL [Concomitant]

REACTIONS (5)
  - LYMPHADENOPATHY [None]
  - OEDEMA PERIPHERAL [None]
  - INAPPROPRIATE SCHEDULE OF DRUG ADMINISTRATION [None]
  - LACERATION [None]
  - PAIN IN EXTREMITY [None]
